FAERS Safety Report 21047200 (Version 3)
Quarter: 2022Q3

REPORT INFORMATION
  Report Type: Spontaneous
  Country: US (occurrence: US)
  Receive Date: 20220706
  Receipt Date: 20220802
  Transmission Date: 20221027
  Serious: Yes (Hospitalization, Other)
  Sender: FDA-Public Use
  Company Number: US-BECTON DICKINSON-US-BD-22-000236

PATIENT
  Age: 46 Year
  Sex: Female

DRUGS (2)
  1. CHLORAPREP [Suspect]
     Active Substance: CHLORHEXIDINE GLUCONATE\ISOPROPYL ALCOHOL
     Indication: Infection prophylaxis
     Dosage: UNK UNK, Q12H
     Route: 065
     Dates: start: 20220518, end: 20220601
  2. CARDENE [Concomitant]
     Active Substance: NICARDIPINE HYDROCHLORIDE
     Indication: Vasospasm
     Dosage: 4 MILLIGRAM, Q12H
     Route: 037
     Dates: start: 20220518, end: 20220601

REACTIONS (5)
  - Device dislocation [Recovering/Resolving]
  - Device physical property issue [Recovering/Resolving]
  - Foreign body [Recovering/Resolving]
  - Acinetobacter infection [Recovered/Resolved]
  - Off label use [Unknown]

NARRATIVE: CASE EVENT DATE: 20220518
